FAERS Safety Report 24164109 (Version 2)
Quarter: 2025Q1

REPORT INFORMATION
  Report Type: Report from Study
  Country: IL (occurrence: IL)
  Receive Date: 20240801
  Receipt Date: 20250327
  Transmission Date: 20250408
  Serious: No
  Sender: TAKEDA
  Company Number: IL-TAKEDA-2023TUS112965

PATIENT
  Sex: Male

DRUGS (2)
  1. VEDOLIZUMAB [Suspect]
     Active Substance: VEDOLIZUMAB
     Indication: Colitis
     Dosage: 300 MILLIGRAM, Q4WEEKS
     Dates: start: 20200701
  2. VEDOLIZUMAB [Suspect]
     Active Substance: VEDOLIZUMAB

REACTIONS (3)
  - Diarrhoea [Unknown]
  - Incisional hernia [Unknown]
  - Pyrexia [Unknown]
